FAERS Safety Report 7470044-4 (Version None)
Quarter: 2011Q2

REPORT INFORMATION
  Report Type: 
  Country: None (occurrence: None)
  Receive Date: 20110510
  Receipt Date: 20110509
  Transmission Date: 20111010
  Serious: Yes (Hospitalization, Other)
  Sender: FDA-Public Use
  Company Number: VE-PFIZER INC-2011093580

PATIENT
  Age: 38 Year
  Sex: Female

DRUGS (1)
  1. LIPITOR [Suspect]
     Indication: CEREBROVASCULAR ACCIDENT
     Dosage: 20 MG, 1X/DAY
     Route: 048
     Dates: start: 20100501

REACTIONS (1)
  - CEREBROVASCULAR ACCIDENT [None]
